FAERS Safety Report 25010442 (Version 1)
Quarter: 2025Q1

REPORT INFORMATION
  Report Type: Spontaneous
  Country: US (occurrence: US)
  Receive Date: 20250225
  Receipt Date: 20250225
  Transmission Date: 20250409
  Serious: Yes (Hospitalization, Other)
  Sender: SANDOZ
  Company Number: US-002147023-NVSC2025US028940

PATIENT
  Sex: Female

DRUGS (4)
  1. AMLODIPINE [Suspect]
     Active Substance: AMLODIPINE BESYLATE
     Indication: Product used for unknown indication
     Route: 065
  2. GLEEVEC [Suspect]
     Active Substance: IMATINIB MESYLATE
     Indication: Product used for unknown indication
     Route: 065
  3. METOPROLOL [Suspect]
     Active Substance: METOPROLOL
     Indication: Product used for unknown indication
     Route: 065
  4. ONDANSETRON [Suspect]
     Active Substance: ONDANSETRON
     Indication: Product used for unknown indication
     Route: 065

REACTIONS (16)
  - Heart rate increased [Unknown]
  - Dehydration [Unknown]
  - Arteriosclerosis coronary artery [Unknown]
  - Myocardial infarction [Unknown]
  - Nausea [Unknown]
  - Vomiting [Unknown]
  - Diarrhoea [Unknown]
  - Bone pain [Unknown]
  - Arthritis [Unknown]
  - Thirst [Unknown]
  - Contusion [Unknown]
  - Lymphocyte count increased [Unknown]
  - Hyperuricaemia [Unknown]
  - Fatigue [Unknown]
  - Splenomegaly [Unknown]
  - Night sweats [Unknown]
